FAERS Safety Report 4770821-4 (Version None)
Quarter: 2005Q3

REPORT INFORMATION
  Report Type: 
  Country: None (occurrence: None)
  Receive Date: 20050915
  Receipt Date: 20050503
  Transmission Date: 20060218
  Serious: Yes (Other)
  Sender: FDA-Public Use
  Company Number: US-GLAXOSMITHKLINE-A0557311A

PATIENT
  Age: 69 Year
  Sex: Female

DRUGS (4)
  1. ADVAIR DISKUS 100/50 [Suspect]
     Indication: CHRONIC OBSTRUCTIVE PULMONARY DISEASE
     Dosage: 1PUFF TWICE PER DAY
     Route: 055
  2. PROVENTIL [Concomitant]
  3. ATROVENT [Concomitant]
  4. SYNTHROID [Concomitant]

REACTIONS (14)
  - ABDOMINAL DISCOMFORT [None]
  - DEPRESSION [None]
  - DISTURBANCE IN ATTENTION [None]
  - ELECTROCARDIOGRAM ABNORMAL [None]
  - FEELING JITTERY [None]
  - HEART RATE INCREASED [None]
  - HEART RATE IRREGULAR [None]
  - INFLUENZA LIKE ILLNESS [None]
  - JOINT SWELLING [None]
  - MUSCLE SPASMS [None]
  - NAUSEA [None]
  - ORAL CANDIDIASIS [None]
  - ORAL DISCOMFORT [None]
  - PALPITATIONS [None]
